FAERS Safety Report 10958727 (Version 3)
Quarter: 2015Q3

REPORT INFORMATION
  Report Type: Spontaneous
  Country: US (occurrence: US)
  Receive Date: 20150326
  Receipt Date: 20150720
  Transmission Date: 20151125
  Serious: Yes (Hospitalization, Other)
  Sender: FDA-Public Use
  Company Number: US-BAYER-2015-068755

PATIENT
  Age: 31 Year
  Sex: Female
  Weight: 79 kg

DRUGS (6)
  1. MIRENA [Suspect]
     Active Substance: LEVONORGESTREL
     Indication: CONTRACEPTION
     Dosage: 20 MCG/24HR, CONT
     Route: 015
     Dates: start: 20090508, end: 201012
  2. MOTRIN [Concomitant]
     Active Substance: IBUPROFEN
  3. MIRENA [Suspect]
     Active Substance: LEVONORGESTREL
     Indication: CONTRACEPTION
     Dosage: 20 MCG/24HR, CONT
     Route: 015
     Dates: start: 20070601, end: 20090305
  4. MIDOL [CAFFEINE,MEPYRAMINE MALEATE,PARACETAMOL] [Concomitant]
     Indication: PAIN
  5. MIRENA [Suspect]
     Active Substance: LEVONORGESTREL
     Indication: CONTRACEPTION
     Dosage: 20 MCG/24HR, CONT
     Route: 015
     Dates: start: 20111102, end: 20130618
  6. NORCO [Concomitant]
     Active Substance: ACETAMINOPHEN\HYDROCODONE BITARTRATE

REACTIONS (7)
  - Device dislocation [None]
  - Urinary tract infection [None]
  - Procedural pain [None]
  - Injury [None]
  - Embedded device [None]
  - Pain [None]
  - Kidney infection [None]

NARRATIVE: CASE EVENT DATE: 201306
